FAERS Safety Report 5707626-3 (Version None)
Quarter: 2008Q2

REPORT INFORMATION
  Report Type: 
  Country: None (occurrence: None)
  Receive Date: 20080407
  Receipt Date: 20080215
  Transmission Date: 20081010
  Serious: Yes (Other)
  Sender: FDA-Public Use
  Company Number: ZYD-AE-08-027

PATIENT
  Age: 28 Year
  Sex: Female

DRUGS (2)
  1. RIBAVIRIN [Suspect]
     Dosage: 1000MG - DAILY - PO
     Route: 048
     Dates: start: 20070412
  2. PEGINTERFERON ALPHA [Suspect]
     Dosage: 100MCG - WEEKLY -SUBQ
     Route: 058
     Dates: start: 20070412

REACTIONS (2)
  - ABORTION INDUCED COMPLETE [None]
  - DRUG EXPOSURE DURING PREGNANCY [None]
